FAERS Safety Report 4321857-9 (Version None)
Quarter: 2004Q1

REPORT INFORMATION
  Report Type: 
  Country: None (occurrence: None)
  Receive Date: 20040322
  Receipt Date: 20040322
  Transmission Date: 20041129
  Serious: Yes (Hospitalization)
  Sender: FDA-Public Use
  Company Number: None

PATIENT
  Age: 48 Year
  Sex: Male
  Weight: 98.4306 kg

DRUGS (6)
  1. RITUXAN [Suspect]
     Indication: B-CELL LYMPHOMA
     Dosage: 788MG DAY 1 IV
     Route: 042
     Dates: start: 20040308
  2. METHOTREXATE [Suspect]
     Indication: NON-HODGKIN'S LYMPHOMA
     Dosage: 630 MG DAY 2 IV
     Route: 042
     Dates: start: 20040309
  3. LEUCOVORIN CALCIUM [Suspect]
     Dosage: 21 MG IV DAY 3
     Route: 042
     Dates: start: 20040310
  4. CYCLOPHOSPHAMIDE [Suspect]
     Indication: LYMPHOMA
     Dosage: 4200 MG IV DAY 3
     Route: 042
     Dates: start: 20040310
  5. DOXORUBICIN HCL [Suspect]
     Indication: LYMPHOMA
     Dosage: 105 MG IV PUSH DAY 3
     Route: 042
     Dates: start: 20040310
  6. VINCRISTINE [Suspect]
     Indication: LYMPHOMA
     Dosage: 20 MG IV PUSH DAY 3
     Route: 042
     Dates: start: 20040310

REACTIONS (6)
  - ABDOMINAL PAIN [None]
  - DEHYDRATION [None]
  - DIARRHOEA [None]
  - MARKEDLY REDUCED DIETARY INTAKE [None]
  - NEUTROPENIA [None]
  - VOMITING [None]
